FAERS Safety Report 5236958-0 (Version None)
Quarter: 2007Q1

REPORT INFORMATION
  Report Type: 
  Country: None (occurrence: None)
  Receive Date: 20070213
  Receipt Date: 20070129
  Transmission Date: 20070707
  Serious: Yes (Other)
  Sender: FDA-Public Use
  Company Number: HQWYE910130JAN07

PATIENT
  Age: 36 Year
  Sex: Male

DRUGS (2)
  1. ETANERCEPT [Suspect]
     Indication: PSORIASIS
     Route: 065
  2. ETANERCEPT [Suspect]

REACTIONS (2)
  - LYMPHADENITIS [None]
  - TUBERCULOSIS [None]
